FAERS Safety Report 19054217 (Version 2)
Quarter: 2021Q2

REPORT INFORMATION
  Report Type: Other
  Country: IT (occurrence: IT)
  Receive Date: 20210325
  Receipt Date: 20210514
  Transmission Date: 20210717
  Serious: Yes (Other)
  Sender: FDA-Public Use
  Company Number: IT-ROCHE-2788346

PATIENT
  Age: 23 Year
  Sex: Male

DRUGS (3)
  1. OKI [Concomitant]
     Active Substance: KETOPROFEN LYSINE
     Indication: PILONIDAL CYST
     Route: 048
  2. RIVOTRIL [Suspect]
     Active Substance: CLONAZEPAM
     Indication: PILONIDAL CYST
     Route: 048
     Dates: start: 20210215, end: 20210215
  3. KLACID [Concomitant]
     Active Substance: CLARITHROMYCIN
     Indication: PILONIDAL CYST
     Route: 048

REACTIONS (3)
  - Syncope [Recovered/Resolved]
  - Hypotension [Recovered/Resolved]
  - Intentional product misuse [Unknown]

NARRATIVE: CASE EVENT DATE: 20210215
